FAERS Safety Report 12331926 (Version 1)
Quarter: 2016Q2

REPORT INFORMATION
  Report Type: Spontaneous
  Country: US (occurrence: US)
  Receive Date: 20160504
  Receipt Date: 20160504
  Transmission Date: 20160815
  Serious: No
  Sender: FDA-Public Use
  Company Number: US-ROCHE-1663185

PATIENT
  Sex: Male

DRUGS (6)
  1. ESBRIET [Suspect]
     Active Substance: PIRFENIDONE
     Indication: IDIOPATHIC PULMONARY FIBROSIS
     Route: 065
     Dates: start: 20151105
  2. CARVEDILOL. [Concomitant]
     Active Substance: CARVEDILOL
     Indication: BLOOD PRESSURE MEASUREMENT
     Route: 065
  3. PREDNISONE. [Concomitant]
     Active Substance: PREDNISONE
     Route: 065
  4. ATORVASTATIN [Concomitant]
     Active Substance: ATORVASTATIN
     Indication: BLOOD CHOLESTEROL
     Route: 065
  5. LEVOTHYROXINE. [Concomitant]
     Active Substance: LEVOTHYROXINE
     Route: 065
  6. ALBUTEROL. [Concomitant]
     Active Substance: ALBUTEROL
     Dosage: 0.083% AS NEEDED
     Route: 065

REACTIONS (2)
  - Abdominal discomfort [Unknown]
  - Diarrhoea [Unknown]
